FAERS Safety Report 10534125 (Version 1)
Quarter: 2014Q4

REPORT INFORMATION
  Report Type: Spontaneous
  Country: US (occurrence: None)
  Receive Date: 20141020
  Receipt Date: 20141020
  Transmission Date: 20150529
  Serious: Yes (Hospitalization)
  Sender: FDA-Public Use
  Company Number: 1713747-2014-999181

PATIENT
  Sex: Female

DRUGS (3)
  1. LIBERTY CYCLER [Concomitant]
     Active Substance: DEVICE
  2. DELFLEX [Suspect]
     Active Substance: CALCIUM CHLORIDE\DEXTROSE MONOHYDRATE\MAGNESIUM CHLORIDE\SODIUM CHLORIDE\SODIUM LACTATE
     Indication: CHRONIC KIDNEY DISEASE
     Dosage: PD DAILY
     Dates: start: 20140910
  3. LIBERTY CYCLER SET [Concomitant]

REACTIONS (2)
  - Fall [None]
  - Device dislocation [None]

NARRATIVE: CASE EVENT DATE: 20140907
